FAERS Safety Report 7333597-2 (Version None)
Quarter: 2011Q1

REPORT INFORMATION
  Report Type: 
  Country: None (occurrence: None)
  Receive Date: 20110304
  Receipt Date: 20110304
  Transmission Date: 20110831
  Serious: Yes (Hospitalization)
  Sender: FDA-Public Use
  Company Number: US-ABBOTT-10P-163-0691793-00

PATIENT
  Sex: Male
  Weight: 51.302 kg

DRUGS (5)
  1. HUMIRA [Suspect]
  2. HUMIRA [Suspect]
  3. HUMIRA [Suspect]
     Indication: CROHN'S DISEASE
     Dates: start: 20101122
  4. PREVACID [Concomitant]
     Indication: PRODUCT USED FOR UNKNOWN INDICATION
  5. IRON [Concomitant]
     Indication: MINERAL SUPPLEMENTATION

REACTIONS (5)
  - VOMITING [None]
  - NAUSEA [None]
  - CONSTIPATION [None]
  - X-RAY WITH CONTRAST UPPER GASTROINTESTINAL TRACT ABNORMAL [None]
  - ABDOMINAL PAIN [None]
